FAERS Safety Report 25502436 (Version 2)
Quarter: 2025Q3

REPORT INFORMATION
  Report Type: Spontaneous
  Country: US (occurrence: US)
  Receive Date: 20250702
  Receipt Date: 20250924
  Transmission Date: 20251020
  Serious: Yes (Other)
  Sender: NOVO NORDISK
  Company Number: US-NOVOPROD-1466858

PATIENT
  Age: 61 Year
  Sex: Female

DRUGS (5)
  1. WEGOVY [Suspect]
     Active Substance: SEMAGLUTIDE
     Indication: Product used for unknown indication
     Dosage: 2.4 MG, QW
     Route: 058
     Dates: start: 202103
  2. WEGOVY [Suspect]
     Active Substance: SEMAGLUTIDE
     Dates: start: 2023
  3. WEGOVY [Suspect]
     Active Substance: SEMAGLUTIDE
     Dates: start: 2025
  4. WEGOVY [Suspect]
     Active Substance: SEMAGLUTIDE
  5. WEGOVY [Suspect]
     Active Substance: SEMAGLUTIDE
     Dates: start: 2024

REACTIONS (7)
  - Hypothyroidism [Unknown]
  - Bunion operation [Unknown]
  - Wrist fracture [Unknown]
  - Gastroenteritis salmonella [Unknown]
  - Weight loss poor [Unknown]
  - Ill-defined disorder [Unknown]
  - Drug effect less than expected [Unknown]

NARRATIVE: CASE EVENT DATE: 20230101
